FAERS Safety Report 7053056-4 (Version None)
Quarter: 2010Q4

REPORT INFORMATION
  Report Type: 
  Country: None (occurrence: None)
  Receive Date: 20101020
  Receipt Date: 20101007
  Transmission Date: 20110411
  Serious: Yes (Hospitalization)
  Sender: FDA-Public Use
  Company Number: FR-JNJFOC-20100605525

PATIENT
  Sex: Female

DRUGS (4)
  1. ZALDIAR [Suspect]
     Indication: PRODUCT USED FOR UNKNOWN INDICATION
     Dosage: 2 DF IN THE MORNING AND 2 DF IN THE EVENING.
     Route: 048
  2. NOVANTRONE [Suspect]
     Indication: PRODUCT USED FOR UNKNOWN INDICATION
     Dosage: THE LAST TREATMENT CYCLE WAS TAKEN ON 14-APR-2010.
     Route: 041
  3. 3,4-DIAMINOPYRIDINE [Suspect]
     Indication: PRODUCT USED FOR UNKNOWN INDICATION
     Dosage: TAKEN EPISODICALLY; LAST INTAKE WAS A FEW WEEKS PRIOR TO THE ONSET OF THE REPORTED EVENT
     Route: 065
  4. ALL OTHER THERAPEUTIC PRODUCTS [Concomitant]
     Indication: DRY SKIN PROPHYLAXIS
     Route: 061

REACTIONS (1)
  - PHOTOSENSITIVITY REACTION [None]
